FAERS Safety Report 6142847-X (Version None)
Quarter: 2009Q1

REPORT INFORMATION
  Report Type: 
  Country: None (occurrence: None)
  Receive Date: 20090327
  Receipt Date: 20090318
  Transmission Date: 20090719
  Serious: Yes (Other)
  Sender: FDA-Public Use
  Company Number: THYM-1000958

PATIENT
  Age: 24 Year
  Sex: Female

DRUGS (1)
  1. THYMOGLOBULIN [Suspect]
     Indication: RENAL TRANSPLANT
     Dosage: 75 MG, QD, INTRAVENOUS
     Route: 042
     Dates: start: 20080909, end: 20080912

REACTIONS (1)
  - BLOOD PARATHYROID HORMONE INCREASED [None]
